FAERS Safety Report 10081989 (Version 1)
Quarter: 2014Q2

REPORT INFORMATION
  Report Type: Spontaneous
  Country: US (occurrence: None)
  Receive Date: 20140415
  Receipt Date: 20140415
  Transmission Date: 20141212
  Serious: No
  Sender: FDA-Public Use
  Company Number: None

PATIENT
  Age: 58 Year
  Sex: Female
  Weight: 80.74 kg

DRUGS (1)
  1. LEXAPRO GENERIC 10MG [Suspect]
     Indication: MAJOR DEPRESSION
     Route: 048
     Dates: start: 201304

REACTIONS (2)
  - Therapeutic response decreased [None]
  - Product substitution issue [None]
